FAERS Safety Report 6039459-5 (Version None)
Quarter: 2009Q1

REPORT INFORMATION
  Report Type: 
  Country: None (occurrence: None)
  Receive Date: 20090114
  Receipt Date: 20081230
  Transmission Date: 20090719
  Serious: Yes (Hospitalization)
  Sender: FDA-Public Use
  Company Number: 8040793

PATIENT
  Age: 19 Year
  Sex: Male
  Weight: 20.1 kg

DRUGS (1)
  1. KEPPRA [Suspect]
     Indication: MYOCLONIC EPILEPSY
     Dosage: 1000 MG 2/D PO
     Route: 048
     Dates: start: 20081125

REACTIONS (2)
  - ABDOMINAL PAIN UPPER [None]
  - ERYTHEMA [None]
